FAERS Safety Report 9154222 (Version 1)
Quarter: 2013Q1

REPORT INFORMATION
  Report Type: Spontaneous
  Country: US (occurrence: US)
  Receive Date: 20130311
  Receipt Date: 20130311
  Transmission Date: 20140127
  Serious: Yes (Disabling, Other)
  Sender: FDA-Public Use
  Company Number: US-PFIZER INC-2013079736

PATIENT
  Age: 57 Year
  Sex: Male
  Weight: 97.51 kg

DRUGS (11)
  1. VIAGRA [Suspect]
     Indication: ERECTILE DYSFUNCTION
     Dosage: 100 MG, 1X/DAY
     Route: 048
  2. SIMVASTATIN [Concomitant]
     Dosage: 40 MG, UNK
  3. ALBUTEROL [Concomitant]
     Dosage: 90 MG, UNK
  4. POTASSIUM CHLORIDE [Concomitant]
     Dosage: 10 MG, 1X/DAY
  5. METRONIDAZOLE [Concomitant]
     Dosage: UNK, 2X/DAY
  6. ASPIRIN [Concomitant]
     Dosage: 325 MG, UNK
  7. OXYCODONE [Concomitant]
     Dosage: 60 MG, UNK
  8. REMERON [Concomitant]
     Dosage: 45 MG, UNK
  9. MIRALAX [Concomitant]
     Dosage: UNK
  10. LASIX [Concomitant]
     Dosage: UNK
  11. PLAVIX [Concomitant]
     Dosage: UNK

REACTIONS (14)
  - Back disorder [Unknown]
  - Coronary artery disease [Unknown]
  - Accident at work [Unknown]
  - Limb injury [Unknown]
  - Electric shock [Unknown]
  - General physical health deterioration [Unknown]
  - Cervical vertebral fracture [Unknown]
  - Joint injury [Unknown]
  - Joint injury [Unknown]
  - Joint injury [Unknown]
  - Hernia [Unknown]
  - Spinal disorder [Unknown]
  - Dyspnoea [Unknown]
  - Activities of daily living impaired [Unknown]
